FAERS Safety Report 24341147 (Version 1)
Quarter: 2024Q3

REPORT INFORMATION
  Report Type: Other
  Country: FR (occurrence: FR)
  Receive Date: 20240919
  Receipt Date: 20240919
  Transmission Date: 20241017
  Serious: Yes (Hospitalization)
  Sender: DENTSPLY
  Company Number: FR-DENTSPLY-2024SCDP000267

PATIENT
  Age: 29 Year
  Sex: Female

DRUGS (1)
  1. LIDOCAINE HYDROCHLORIDE AND EPINEPHRINE BITARTRATE [Suspect]
     Active Substance: EPINEPHRINE BITARTRATE\LIDOCAINE HYDROCHLORIDE
     Indication: Caesarean section
     Dosage: 15 MILLILITER OF LIDOCAINE 20 MG/ML ADRENALINE 0.005 MG/ML AGUETTANT, SOLUTION FOR INJECTION
     Route: 008
     Dates: start: 20240309

REACTIONS (3)
  - Accidental overdose [Recovered/Resolved]
  - Dysgeusia [Recovered/Resolved]
  - Hypotension [Recovered/Resolved]

NARRATIVE: CASE EVENT DATE: 20240309
